FAERS Safety Report 11050171 (Version 2)
Quarter: 2015Q2

REPORT INFORMATION
  Report Type: Spontaneous
  Country: JP (occurrence: JP)
  Receive Date: 20150420
  Receipt Date: 20150611
  Transmission Date: 20150821
  Serious: Yes (Hospitalization)
  Sender: FDA-Public Use
  Company Number: JP-BRISTOL-MYERS SQUIBB COMPANY-BMS-2015-023048

PATIENT
  Age: 65 Year
  Sex: Male
  Weight: 53 kg

DRUGS (6)
  1. CHLORPHENIRAMINE MALEATE. [Concomitant]
     Active Substance: CHLORPHENIRAMINE MALEATE
     Indication: PROPHYLAXIS
     Dosage: 10 MG, UNK
     Route: 042
     Dates: start: 20150311, end: 20150507
  2. ERBITUX [Suspect]
     Active Substance: CETUXIMAB
     Dosage: 250 MG/M2, QWK
     Route: 041
     Dates: start: 20150401, end: 20150507
  3. MINOMYCIN [Suspect]
     Active Substance: MINOCYCLINE HYDROCHLORIDE
     Indication: ACNE
     Dosage: 200 MG, QD
     Route: 048
     Dates: start: 20150310
  4. ERBITUX [Suspect]
     Active Substance: CETUXIMAB
     Indication: HYPOPHARYNGEAL CANCER
     Dosage: 400 MG/M2, QWK
     Route: 041
     Dates: start: 20150311, end: 20150311
  5. ERBITUX [Suspect]
     Active Substance: CETUXIMAB
     Dosage: 250 MG/M2, QWK
     Route: 041
     Dates: start: 20150323, end: 20150507
  6. DEXAMETHASONE. [Concomitant]
     Active Substance: DEXAMETHASONE
     Indication: PROPHYLAXIS
     Dosage: 6.6 MG, QWK
     Route: 042
     Dates: start: 20150311, end: 20150507

REACTIONS (1)
  - Hepatic function abnormal [Recovering/Resolving]

NARRATIVE: CASE EVENT DATE: 20150318
